FAERS Safety Report 18748800 (Version 9)
Quarter: 2022Q1

REPORT INFORMATION
  Report Type: Report from Study
  Country: US (occurrence: US)
  Receive Date: 20210115
  Receipt Date: 20220118
  Transmission Date: 20220423
  Serious: No
  Sender: FDA-Public Use
  Company Number: NVSC2021US008527

PATIENT
  Age: 61 Year
  Sex: Male

DRUGS (4)
  1. COSENTYX [Suspect]
     Active Substance: SECUKINUMAB
     Indication: Psoriasis
     Dosage: 300 MG, QW (QW FOR 5 WEEKS AND Q4W)
     Route: 058
     Dates: start: 20201107
  2. COSENTYX [Suspect]
     Active Substance: SECUKINUMAB
     Indication: Psoriasis
     Dosage: 300 MG, QW (SQ AT WEEKS 0, 1, 2, 3, AND 4)
     Route: 058
  3. COSENTYX [Suspect]
     Active Substance: SECUKINUMAB
     Dosage: 300 MG, Q4W
     Route: 058
  4. COSENTYX [Suspect]
     Active Substance: SECUKINUMAB
     Dosage: 300 MG, Q5W
     Route: 058
     Dates: start: 20201111

REACTIONS (12)
  - Hypersensitivity [Unknown]
  - Swollen tongue [Unknown]
  - Odynophagia [Unknown]
  - Tongue erythema [Unknown]
  - Dyspnoea [Unknown]
  - Product dispensing error [Unknown]
  - Psoriasis [Unknown]
  - Pruritus [Unknown]
  - Skin weeping [Unknown]
  - Skin exfoliation [Unknown]
  - Scab [Unknown]
  - Urticaria [Unknown]

NARRATIVE: CASE EVENT DATE: 20201201
